FAERS Safety Report 23413353 (Version 1)
Quarter: 2024Q1

REPORT INFORMATION
  Report Type: Spontaneous
  Country: US (occurrence: US)
  Receive Date: 20240117
  Receipt Date: 20240117
  Transmission Date: 20240409
  Serious: No
  Sender: FDA-Public Use
  Company Number: US-NOVOPROD-1138366

PATIENT
  Sex: Male

DRUGS (2)
  1. OZEMPIC [Suspect]
     Active Substance: SEMAGLUTIDE
     Indication: Product used for unknown indication
     Dosage: UNK
     Route: 058
  2. DUPILUMAB [Suspect]
     Active Substance: DUPILUMAB
     Indication: Product used for unknown indication
     Dosage: UNK

REACTIONS (7)
  - Skin fissures [Unknown]
  - Peripheral swelling [Recovering/Resolving]
  - Hyperkeratosis [Unknown]
  - Dry skin [Unknown]
  - Skin atrophy [Unknown]
  - Skin haemorrhage [Unknown]
  - Nausea [Recovering/Resolving]
